FAERS Safety Report 13165649 (Version 2)
Quarter: 2017Q2

REPORT INFORMATION
  Report Type: Spontaneous
  Country: NL (occurrence: NL)
  Receive Date: 20170131
  Receipt Date: 20170421
  Transmission Date: 20170830
  Serious: Yes (Life-Threatening, Hospitalization, Other)
  Sender: FDA-Public Use
  Company Number: NL-ACCORD-047652

PATIENT
  Age: 64 Year
  Sex: Female

DRUGS (8)
  1. METHYLTHIONINIUM [Suspect]
     Active Substance: METHYLENE BLUE
     Indication: VASOPLEGIA SYNDROME
     Dosage: METHYLENE BLUE
  2. GRANISETRON [Suspect]
     Active Substance: GRANISETRON
     Indication: PRODUCT USED FOR UNKNOWN INDICATION
  3. VASOPRESSIN. [Concomitant]
     Active Substance: VASOPRESSIN
     Indication: VASOPLEGIA SYNDROME
  4. QUETIAPINE. [Suspect]
     Active Substance: QUETIAPINE
     Indication: DEPRESSION
  5. ESKETAMINE/ESKETAMINE HYDROCHLORIDE [Suspect]
     Active Substance: ESKETAMINE HYDROCHLORIDE
     Indication: PRODUCT USED FOR UNKNOWN INDICATION
  6. DESFLURANE. [Concomitant]
     Active Substance: DESFLURANE
  7. PAROXETINE. [Suspect]
     Active Substance: PAROXETINE
     Indication: DEPRESSION
  8. CLONAZEPAM. [Concomitant]
     Active Substance: CLONAZEPAM

REACTIONS (11)
  - Body temperature increased [Recovered/Resolved]
  - Blood creatine phosphokinase increased [Recovered/Resolved]
  - Neurological decompensation [Unknown]
  - Somnolence [Unknown]
  - Serotonin syndrome [Recovered/Resolved]
  - Nystagmus [Unknown]
  - Hypertonia [Unknown]
  - Hyperkalaemia [Unknown]
  - Mydriasis [Unknown]
  - Renal impairment [Recovered/Resolved]
  - Aspartate aminotransferase increased [Recovered/Resolved]
